FAERS Safety Report 11853190 (Version 2)
Quarter: 2015Q4

REPORT INFORMATION
  Report Type: Report from Study
  Country: US (occurrence: US)
  Receive Date: 20151218
  Receipt Date: 20151223
  Transmission Date: 20160305
  Serious: Yes (Death, Hospitalization)
  Sender: FDA-Public Use
  Company Number: US-ACTELION-A-NJ2015-124891

PATIENT
  Age: 67 Year
  Sex: Male

DRUGS (5)
  1. TRACLEER [Suspect]
     Active Substance: BOSENTAN
     Indication: PULMONARY HYPERTENSION
     Route: 048
  2. COUMADIN [Concomitant]
     Active Substance: WARFARIN SODIUM
  3. VENTAVIS [Suspect]
     Active Substance: ILOPROST
     Indication: PULMONARY HYPERTENSION
     Dosage: 5 MCG, 6-9X/DAY
     Route: 055
     Dates: start: 20150916
  4. ADCIRCA [Concomitant]
     Active Substance: TADALAFIL
  5. VENTAVIS [Suspect]
     Active Substance: ILOPROST
     Dosage: 5 MCG, UNK
     Route: 055

REACTIONS (16)
  - Death [Fatal]
  - Dyspnoea [Unknown]
  - Laceration [Unknown]
  - Haemorrhage [Unknown]
  - Epistaxis [Unknown]
  - Hypotension [Unknown]
  - Oedema peripheral [Unknown]
  - Blister [Unknown]
  - Drug administration error [Unknown]
  - Productive cough [Unknown]
  - Fluid retention [Unknown]
  - Oedema [Unknown]
  - Cough [Unknown]
  - Renal disorder [Unknown]
  - Nausea [Unknown]
  - Product packaging issue [Unknown]
